FAERS Safety Report 13463871 (Version 1)
Quarter: 2017Q2

REPORT INFORMATION
  Report Type: Spontaneous
  Country: US (occurrence: US)
  Receive Date: 20170420
  Receipt Date: 20170420
  Transmission Date: 20170830
  Serious: Yes (Other)
  Sender: FDA-Public Use
  Company Number: US-ROCHE-659109

PATIENT
  Age: 17 Year
  Sex: Male
  Weight: 90.7 kg

DRUGS (2)
  1. ACCUTANE [Suspect]
     Active Substance: ISOTRETINOIN
     Indication: ACNE CYSTIC
     Route: 065
     Dates: start: 19991206, end: 200006
  2. AMOXICILLIN. [Concomitant]
     Active Substance: AMOXICILLIN
     Indication: PHARYNGITIS
     Route: 065

REACTIONS (8)
  - Pharyngitis [Unknown]
  - Blood alkaline phosphatase increased [Unknown]
  - Nephrolithiasis [Unknown]
  - Colitis [Unknown]
  - Arthralgia [Unknown]
  - Inflammatory bowel disease [Unknown]
  - Dry skin [Unknown]
  - Hepatic enzyme increased [Unknown]

NARRATIVE: CASE EVENT DATE: 19991231
